FAERS Safety Report 6828894-0 (Version None)
Quarter: 2010Q3

REPORT INFORMATION
  Report Type: 
  Country: None (occurrence: None)
  Receive Date: 20100709
  Receipt Date: 20070224
  Transmission Date: 20110219
  Serious: No
  Sender: FDA-Public Use
  Company Number: US-PFIZER INC-2007015830

PATIENT
  Sex: Male
  Weight: 74.84 kg

DRUGS (3)
  1. CHANTIX [Suspect]
     Indication: SMOKING CESSATION THERAPY
     Dates: start: 20070101
  2. XANAX [Suspect]
     Indication: SLEEP DISORDER
  3. VITAMINS [Concomitant]

REACTIONS (6)
  - ABNORMAL DREAMS [None]
  - DRUG INEFFECTIVE FOR UNAPPROVED INDICATION [None]
  - MYALGIA [None]
  - NASOPHARYNGITIS [None]
  - ORAL HERPES [None]
  - SLEEP DISORDER [None]
